FAERS Safety Report 10251309 (Version 1)
Quarter: 2014Q2

REPORT INFORMATION
  Report Type: Spontaneous
  Country: US (occurrence: US)
  Receive Date: 20140621
  Receipt Date: 20140621
  Transmission Date: 20141212
  Serious: No
  Sender: FDA-Public Use
  Company Number: US-ASTRAZENECA-2014SE41066

PATIENT
  Age: 86 Year
  Sex: Female
  Weight: 64.9 kg

DRUGS (11)
  1. NEXIUM [Suspect]
     Indication: ULCER
     Route: 048
  2. NEXIUM [Suspect]
     Indication: GASTROOESOPHAGEAL REFLUX DISEASE
     Route: 048
  3. NEXIUM 24 HR [Suspect]
     Indication: ULCER
     Route: 048
  4. NEXIUM 24 HR [Suspect]
     Indication: GASTROOESOPHAGEAL REFLUX DISEASE
     Route: 048
  5. OMEPRAZOLE [Suspect]
     Indication: ULCER
     Route: 048
     Dates: start: 2010
  6. OMEPRAZOLE [Suspect]
     Indication: GASTROOESOPHAGEAL REFLUX DISEASE
     Route: 048
     Dates: start: 2010
  7. LOSARTAN [Concomitant]
     Indication: HYPERTENSION
  8. BYSTOLIC [Concomitant]
     Indication: HYPERTENSION
  9. BABY ASPIRIN [Concomitant]
  10. CALTRATE WITH D3 [Concomitant]
     Indication: SUPPLEMENTATION THERAPY
  11. B12 [Concomitant]
     Indication: SUPPLEMENTATION THERAPY

REACTIONS (6)
  - Hypertension [Unknown]
  - Mental impairment [Unknown]
  - Decreased appetite [Unknown]
  - Weight decreased [Unknown]
  - Abdominal discomfort [Unknown]
  - Intentional product misuse [Unknown]
